FAERS Safety Report 25745548 (Version 1)
Quarter: 2025Q3

REPORT INFORMATION
  Report Type: Spontaneous
  Country: US (occurrence: US)
  Receive Date: 20250901
  Receipt Date: 20250901
  Transmission Date: 20251021
  Serious: No
  Sender: Kenvue
  Company Number: US-KENVUE-20250803342

PATIENT
  Age: 74 Year
  Sex: Female

DRUGS (1)
  1. TYLENOL 8HR [Suspect]
     Active Substance: ACETAMINOPHEN
     Indication: Arthritis
     Dosage: 1 DOSAGE FORM, TWICE A DAY (ONE IN THE MORNING, THEN ANOTHER ONE IN THE MID-AFTERNOON)
     Route: 065
     Dates: start: 20250801

REACTIONS (3)
  - Somnolence [Not Recovered/Not Resolved]
  - Incorrect dose administered [Unknown]
  - Inappropriate schedule of product administration [Unknown]

NARRATIVE: CASE EVENT DATE: 20250801
